FAERS Safety Report 15857063 (Version 3)
Quarter: 2019Q1

REPORT INFORMATION
  Report Type: Spontaneous
  Country: JP (occurrence: JP)
  Receive Date: 20190123
  Receipt Date: 20190207
  Transmission Date: 20190417
  Serious: No
  Sender: FDA-Public Use
  Company Number: PHJP2019JP000773

PATIENT
  Age: 43 Year
  Sex: Male

DRUGS (6)
  1. PERAMPANEL [Suspect]
     Active Substance: PERAMPANEL
     Dosage: 4 MG, UNK
     Route: 065
  2. TEGRETOL [Suspect]
     Active Substance: CARBAMAZEPINE
     Indication: TEMPORAL LOBE EPILEPSY
     Dosage: 600 MG, QD
     Route: 048
  3. PERAMPANEL [Suspect]
     Active Substance: PERAMPANEL
     Dosage: 2 MG, UNK
     Route: 065
  4. PERAMPANEL [Suspect]
     Active Substance: PERAMPANEL
     Dosage: 4 MG, UNK
     Route: 065
  5. VALPROATE SODIUM. [Concomitant]
     Active Substance: VALPROATE SODIUM
     Indication: GENERALISED TONIC-CLONIC SEIZURE
     Dosage: 1000 MG, UNK
     Route: 065
  6. PERAMPANEL [Suspect]
     Active Substance: PERAMPANEL
     Indication: TEMPORAL LOBE EPILEPSY
     Dosage: UNK
     Route: 065

REACTIONS (2)
  - Insomnia [Unknown]
  - Somnolence [Unknown]
